FAERS Safety Report 25369217 (Version 1)
Quarter: 2025Q2

REPORT INFORMATION
  Report Type: Report from Study
  Country: FR (occurrence: FR)
  Receive Date: 20250528
  Receipt Date: 20250528
  Transmission Date: 20250717
  Serious: Yes (Other)
  Sender: UCB
  Company Number: FR-UCBSA-2025014597

PATIENT
  Age: 24 Year
  Sex: Female
  Weight: 60 kg

DRUGS (2)
  1. BIMEKIZUMAB [Suspect]
     Active Substance: BIMEKIZUMAB
     Indication: Axial spondyloarthritis
     Dosage: 160 MILLIGRAM, MONTHLY (QM)
     Route: 058
     Dates: start: 20241205
  2. BIMEKIZUMAB [Suspect]
     Active Substance: BIMEKIZUMAB
     Dosage: 160 MILLIGRAM, MONTHLY (QM)
     Route: 058
     Dates: start: 20250110

REACTIONS (3)
  - Inflammatory bowel disease [Unknown]
  - Dactylitis [Unknown]
  - Sinusitis [Recovering/Resolving]

NARRATIVE: CASE EVENT DATE: 20241229
